FAERS Safety Report 19290315 (Version 1)
Quarter: 2021Q2

REPORT INFORMATION
  Report Type: Spontaneous
  Country: US (occurrence: US)
  Receive Date: 20210521
  Receipt Date: 20210521
  Transmission Date: 20210717
  Serious: No
  Sender: FDA-Public Use
  Company Number: US-RADIUS HEALTH INC.-2021US001385

PATIENT
  Sex: Female

DRUGS (3)
  1. TYMLOS [Suspect]
     Active Substance: ABALOPARATIDE
     Indication: SENILE OSTEOPOROSIS
     Dosage: 80 MCG, QD
     Route: 058
     Dates: start: 20210312
  2. TYMLOS [Suspect]
     Active Substance: ABALOPARATIDE
     Dosage: 40 MCG/QD
  3. TYMLOS [Suspect]
     Active Substance: ABALOPARATIDE
     Dosage: 50 MCG/QD

REACTIONS (3)
  - Back pain [Recovered/Resolved]
  - Neck pain [Recovered/Resolved]
  - Off label use [Not Recovered/Not Resolved]
